FAERS Safety Report 6489850-8 (Version None)
Quarter: 2009Q4

REPORT INFORMATION
  Report Type: 
  Country: None (occurrence: None)
  Receive Date: 20091211
  Receipt Date: 20091130
  Transmission Date: 20100525
  Serious: Yes (Other)
  Sender: FDA-Public Use
  Company Number: US-RANBAXY-2009RR-29462

PATIENT
  Age: 75 Year
  Sex: Male
  Weight: 65.8 kg

DRUGS (3)
  1. GABAPENTIN [Suspect]
     Indication: ANXIETY
     Dosage: 300 MG, TID
     Route: 048
  2. TRAZODONE [Concomitant]
     Indication: INSOMNIA
     Dosage: 25 MG, QD
     Route: 048
  3. LIDOCAINE [Concomitant]
     Indication: MOUTH ULCERATION
     Dosage: 5 ML, QID
     Route: 048

REACTIONS (1)
  - CHOREA [None]
